FAERS Safety Report 6879017-3 (Version None)
Quarter: 2010Q3

REPORT INFORMATION
  Report Type: 
  Country: None (occurrence: None)
  Receive Date: 20100728
  Receipt Date: 20100611
  Transmission Date: 20110219
  Serious: No
  Sender: FDA-Public Use
  Company Number: US-BAYER-201026277NA

PATIENT
  Age: 58 Year
  Weight: 59 kg

DRUGS (2)
  1. ULTRAVIST (PHARMACY BULK) [Suspect]
     Indication: COMPUTERISED TOMOGRAM ABDOMEN
     Dosage: TOTAL DAILY DOSE: 125 ML  UNIT DOSE: 500 ML
     Route: 042
     Dates: start: 20100611, end: 20100611
  2. READI-CAT [Concomitant]
     Indication: COMPUTERISED TOMOGRAM ABDOMEN
     Dosage: 2 BOTTLES
     Route: 048
     Dates: start: 20100611, end: 20100611

REACTIONS (4)
  - ERYTHEMA [None]
  - OCULAR HYPERAEMIA [None]
  - THROAT IRRITATION [None]
  - THROAT TIGHTNESS [None]
